FAERS Safety Report 14610728 (Version 4)
Quarter: 2018Q2

REPORT INFORMATION
  Report Type: Spontaneous
  Country: BA (occurrence: BA)
  Receive Date: 20180308
  Receipt Date: 20180514
  Transmission Date: 20180711
  Serious: Yes (Hospitalization)
  Sender: FDA-Public Use
  Company Number: BA-ABBVIE-18K-211-2276862-00

PATIENT
  Sex: Female

DRUGS (8)
  1. HUMIRA [Suspect]
     Active Substance: ADALIMUMAB
     Indication: UVEITIS
     Dosage: FIRST DOSE OF ADALIMUMAB WAS 80 MG.
     Route: 058
     Dates: start: 20171130
  2. HUMIRA [Suspect]
     Active Substance: ADALIMUMAB
     Route: 058
  3. UNICLOPHEN [Concomitant]
     Indication: PRODUCT USED FOR UNKNOWN INDICATION
     Dosage: 2 X IN BOTH EYES
  4. TRUSOPT [Concomitant]
     Active Substance: DORZOLAMIDE HYDROCHLORIDE
     Indication: PRODUCT USED FOR UNKNOWN INDICATION
     Dosage: 3 X TO LEFT EYE IN THE EVENING
  5. NEOSYNEPHRINE [Concomitant]
     Active Substance: PHENYLEPHRINE HYDROCHLORIDE
     Indication: PRODUCT USED FOR UNKNOWN INDICATION
     Dosage: 3 X IN LEFT EYE
  6. CONTROLOC [Concomitant]
     Active Substance: PANTOPRAZOLE SODIUM
     Indication: PRODUCT USED FOR UNKNOWN INDICATION
  7. METHYLPREDNISOLONE. [Concomitant]
     Active Substance: METHYLPREDNISOLONE
     Indication: PRODUCT USED FOR UNKNOWN INDICATION
     Route: 042
  8. DIFEN [Concomitant]
     Indication: PRODUCT USED FOR UNKNOWN INDICATION
     Dosage: FREQUENCY TEXT 2 X 50 MG

REACTIONS (7)
  - Uveitis [Not Recovered/Not Resolved]
  - Hypermetropia [Not Recovered/Not Resolved]
  - Autoimmune uveitis [Recovering/Resolving]
  - Lenticular opacities [Not Recovered/Not Resolved]
  - Eye disorder [Unknown]
  - Cataract [Not Recovered/Not Resolved]
  - Drug effect incomplete [Unknown]
